FAERS Safety Report 17535208 (Version 1)
Quarter: 2020Q1

REPORT INFORMATION
  Report Type: Spontaneous
  Country: US (occurrence: US)
  Receive Date: 20200313
  Receipt Date: 20200313
  Transmission Date: 20200409
  Serious: No
  Sender: FDA-Public Use
  Company Number: US-BION-008215

PATIENT
  Sex: Female

DRUGS (1)
  1. NIMODIPINE. [Suspect]
     Active Substance: NIMODIPINE
     Indication: SUBARACHNOID HAEMORRHAGE
     Dosage: STRENGTH: 30 MG
     Dates: start: 20190823

REACTIONS (1)
  - Accidental overdose [Not Recovered/Not Resolved]

NARRATIVE: CASE EVENT DATE: 20190823
